FAERS Safety Report 8774010 (Version 1)
Quarter: 2012Q4

REPORT INFORMATION
  Report Type: 
  Country: BR (occurrence: BR)
  Receive Date: 20120907
  Receipt Date: 20120907
  Transmission Date: 20130627
  Serious: Yes (Hospitalization, Other)
  Sender: FDA-Public Use
  Company Number: BR-AMGEN-BRASP2012056222

PATIENT
  Age: 59 Year
  Sex: Male
  Weight: 84 kg

DRUGS (8)
  1. MIMPARA [Suspect]
     Indication: HYPERPARATHYROIDISM SECONDARY
     Dosage: 30 mg, qd
     Route: 048
     Dates: start: 201207
  2. RENAGEL                            /01459901/ [Concomitant]
     Indication: BLOOD PHOSPHORUS ABNORMAL
     Dosage: UNK UNK, qd
     Route: 048
     Dates: start: 2007
  3. FOLIC ACID [Concomitant]
     Dosage: UNK UNK, qd
     Route: 048
     Dates: start: 2007
  4. SIMVASTATIN [Concomitant]
     Indication: BLOOD CHOLESTEROL ABNORMAL
     Dosage: UNK UNK, qd
     Route: 048
     Dates: start: 2007
  5. AMLODIPINE [Concomitant]
     Indication: BLOOD PRESSURE ABNORMAL
     Dosage: UNK UNK, qd
     Route: 048
     Dates: start: 2007
  6. OMEPRAZOLE [Concomitant]
     Indication: GASTRITIS
     Dosage: UNK
     Route: 048
     Dates: start: 2009
  7. ATORVASTATIN [Concomitant]
     Indication: BLOOD CHOLESTEROL ABNORMAL
     Dosage: UNK
     Route: 048
     Dates: start: 2007
  8. CLUSIVOL [Concomitant]
     Indication: DECREASED APPETITE
     Dosage: UNK UNK, qd
     Route: 048
     Dates: start: 201206

REACTIONS (8)
  - Oedema peripheral [Not Recovered/Not Resolved]
  - Medical device complication [Unknown]
  - Fistula [Unknown]
  - Central venous catheter removal [Unknown]
  - Central venous catheterisation [Unknown]
  - Malaise [Not Recovered/Not Resolved]
  - Eating disorder [Unknown]
  - Vomiting [Unknown]
